FAERS Safety Report 8082343-6 (Version None)
Quarter: 2012Q1

REPORT INFORMATION
  Report Type: 
  Country: None (occurrence: None)
  Receive Date: 20120127
  Receipt Date: 20110217
  Transmission Date: 20120608
  Serious: No
  Sender: FDA-Public Use
  Company Number: US-ABBOTT-11P-163-0705890-00

PATIENT
  Age: 54 Year
  Sex: Male

DRUGS (7)
  1. STEROID EYE DROP [Concomitant]
     Indication: UVEITIS
  2. MYCOPHENOLATE MOFETIL (CELLCEPT) [Concomitant]
     Indication: UVEITIS
     Dosage: 2 TABS IN THE MORNING 1 TAB IN THE EVENING
     Route: 048
  3. TWO TYPES OF INSULIN [Concomitant]
     Indication: DIABETES MELLITUS
  4. OTHER EYE DROPS [Concomitant]
     Indication: GLAUCOMA
  5. BLOOD PRESSURE MEDICATION [Concomitant]
     Indication: HYPERTENSION
  6. HUMIRA [Suspect]
     Indication: RHEUMATOID ARTHRITIS
     Dates: start: 20110211
  7. POTASSIUM [Concomitant]
     Indication: PRODUCT USED FOR UNKNOWN INDICATION

REACTIONS (4)
  - ARTHRALGIA [None]
  - JOINT SWELLING [None]
  - PALPITATIONS [None]
  - PAIN IN EXTREMITY [None]
